FAERS Safety Report 9362176 (Version 1)
Quarter: 2013Q2

REPORT INFORMATION
  Report Type: Spontaneous
  Country: US (occurrence: US)
  Receive Date: 20130622
  Receipt Date: 20130622
  Transmission Date: 20140414
  Serious: No
  Sender: FDA-Public Use
  Company Number: US-B.I. PHARMACEUTICALS,INC./RIDGEFIELD-2013-BI-17103BP

PATIENT
  Sex: 0

DRUGS (2)
  1. CATAPRES TTS [Suspect]
     Indication: HYPERTENSION
     Dosage: 0.1 MG
     Route: 061
  2. CATAPRES TTS [Suspect]
     Indication: ATTENTION DEFICIT/HYPERACTIVITY DISORDER
     Dosage: 0.2 MG
     Route: 061

REACTIONS (1)
  - Product quality issue [Unknown]
